FAERS Safety Report 4480487-9 (Version None)
Quarter: 2004Q4

REPORT INFORMATION
  Report Type: 
  Country: None (occurrence: None)
  Receive Date: 20041018
  Receipt Date: 20041006
  Transmission Date: 20050328
  Serious: Yes (Hospitalization)
  Sender: FDA-Public Use
  Company Number: 205821

PATIENT
  Age: 0 Day
  Sex: Female
  Weight: 1.9051 kg

DRUGS (3)
  1. AVONEX [Suspect]
     Indication: MULTIPLE SCLEROSIS
     Dosage: 30 MCG QW IM
     Route: 030
     Dates: start: 20010101, end: 20030101
  2. BACLOFEN [Concomitant]
  3. NERVE PILLS (NOS) [Concomitant]

REACTIONS (12)
  - ARTHROPATHY [None]
  - BACILLUS INFECTION [None]
  - BRADYCARDIA NEONATAL [None]
  - CONVULSION NEONATAL [None]
  - DEVELOPMENTAL DELAY [None]
  - DRUG EXPOSURE DURING PREGNANCY [None]
  - HERNIA [None]
  - MENINGITIS NEONATAL [None]
  - NEONATAL DISORDER [None]
  - PLACENTA PRAEVIA [None]
  - PREMATURE BABY [None]
  - SMALL FOR DATES BABY [None]
